FAERS Safety Report 13559731 (Version 3)
Quarter: 2019Q1

REPORT INFORMATION
  Report Type: Report from Study
  Country: DE (occurrence: DE)
  Receive Date: 20170518
  Receipt Date: 20190212
  Transmission Date: 20190417
  Serious: Yes (Hospitalization, Other)
  Sender: FDA-Public Use
  Company Number: PHHY2017DE070766

PATIENT
  Sex: Male
  Weight: 77 kg

DRUGS (13)
  1. ENTRESTO [Suspect]
     Active Substance: SACUBITRIL\VALSARTAN
     Dosage: 1 DF, BID
     Route: 048
     Dates: start: 20161115, end: 20170405
  2. ASPIRIN. [Concomitant]
     Active Substance: ASPIRIN
     Indication: CORONARY ARTERY DISEASE
     Dosage: 1 DF, QD
     Route: 048
     Dates: start: 20160613
  3. DUORESP [Concomitant]
     Active Substance: BUDESONIDE\FORMOTEROL
     Indication: ASTHMA
  4. TORASEMIDE [Suspect]
     Active Substance: TORSEMIDE
     Dosage: 0.5 DF, QD
     Route: 048
     Dates: start: 20161011, end: 20170110
  5. TORASEMIDE [Suspect]
     Active Substance: TORSEMIDE
     Dosage: 1.5 DF, BID
     Route: 048
     Dates: start: 20170111
  6. ADENURIC [Suspect]
     Active Substance: FEBUXOSTAT
     Indication: GOUT
     Dosage: 1 DF, QD
     Route: 048
     Dates: start: 20161010, end: 20170405
  7. SPIRONOLACTONE. [Concomitant]
     Active Substance: SPIRONOLACTONE
     Indication: CARDIAC FAILURE
     Dosage: 0.5 DF, QD
     Route: 048
     Dates: start: 20160613, end: 20161017
  8. ENTRESTO [Suspect]
     Active Substance: SACUBITRIL\VALSARTAN
     Indication: CARDIAC FAILURE
     Dosage: 1 DF (24/26 MG), BID
     Route: 048
     Dates: start: 20161010, end: 20161017
  9. TORASEMIDE [Suspect]
     Active Substance: TORSEMIDE
     Indication: CARDIAC FAILURE
     Dosage: 1.5 DF, QD (1-0.5-0)
     Route: 048
     Dates: start: 20160613, end: 20161010
  10. EFIENT [Concomitant]
     Active Substance: PRASUGREL HYDROCHLORIDE
     Indication: CORONARY ARTERY DISEASE
     Dosage: 1 DF, QD
     Route: 048
     Dates: start: 20160613
  11. ENTRESTO [Suspect]
     Active Substance: SACUBITRIL\VALSARTAN
     Dosage: 1 DF (49/51MG), BID
     Route: 048
     Dates: start: 20161018, end: 20161114
  12. ATORVASTATIN [Concomitant]
     Active Substance: ATORVASTATIN
     Indication: CORONARY ARTERY DISEASE
     Dosage: 1 DF, QD
     Route: 048
     Dates: start: 20160613
  13. DUORESP [Concomitant]
     Active Substance: BUDESONIDE\FORMOTEROL
     Indication: CHRONIC OBSTRUCTIVE PULMONARY DISEASE
     Dosage: 1 DF, BID
     Route: 055
     Dates: start: 20151028

REACTIONS (7)
  - Pancytopenia [Recovered/Resolved]
  - Cardiac failure [Recovering/Resolving]
  - Brain natriuretic peptide increased [Recovering/Resolving]
  - Angina pectoris [Recovered/Resolved]
  - Syncope [Recovered/Resolved]
  - Discomfort [Recovered/Resolved]
  - Dizziness [Recovered/Resolved]

NARRATIVE: CASE EVENT DATE: 20170110
